FAERS Safety Report 13250497 (Version 1)
Quarter: 2017Q1

REPORT INFORMATION
  Report Type: Spontaneous
  Country: CA (occurrence: CA)
  Receive Date: 20170219
  Receipt Date: 20170219
  Transmission Date: 20170428
  Serious: Yes (Other)
  Sender: FDA-Public Use
  Company Number: CA-CONCORDIA PHARMACEUTICALS INC.-GSH201702-001110

PATIENT
  Age: 38 Year
  Sex: Female

DRUGS (15)
  1. METHOTREXATE SODIUM TABLET [Suspect]
     Active Substance: METHOTREXATE SODIUM
     Route: 048
  2. PANTOPRAZOLE [Concomitant]
     Active Substance: PANTOPRAZOLE SODIUM
  3. TECTA [Concomitant]
     Active Substance: PANTOPRAZOLE MAGNESIUM
  4. ARAVA [Suspect]
     Active Substance: LEFLUNOMIDE
     Indication: RHEUMATOID ARTHRITIS
     Route: 048
  5. ERGOCALCIFEROL TABLETS [Concomitant]
     Dosage: 2000 UNIT/ML DAILY
     Route: 048
  6. APO-NAPROXEN TABLET [Concomitant]
  7. APO-PREDNISONE TABLET [Concomitant]
  8. PLAQUENIL [Suspect]
     Active Substance: HYDROXYCHLOROQUINE SULFATE
     Indication: RHEUMATOID ARTHRITIS
     Route: 048
  9. PLAQUENIL [Suspect]
     Active Substance: HYDROXYCHLOROQUINE SULFATE
     Route: 065
  10. WELLBUTRIN [Concomitant]
     Active Substance: BUPROPION HYDROCHLORIDE
  11. CORTISONE [Concomitant]
     Active Substance: CORTISONE\HYDROCORTISONE
     Dates: start: 201209
  12. LEUCOVORIN CALCIUM TABLET [Concomitant]
  13. ASCORBIC ACID CAPSULE [Concomitant]
     Route: 048
  14. METHOTREXATE SODIUM TABLET [Suspect]
     Active Substance: METHOTREXATE SODIUM
     Indication: RHEUMATOID ARTHRITIS
     Route: 065
  15. FOLIC ACID. [Concomitant]
     Active Substance: FOLIC ACID

REACTIONS (14)
  - Gastrointestinal disorder [Unknown]
  - Anxiety [Unknown]
  - Arthralgia [Recovering/Resolving]
  - Thirst [Unknown]
  - Tremor [Unknown]
  - Rheumatoid arthritis [Unknown]
  - Condition aggravated [Unknown]
  - Feeling abnormal [Unknown]
  - Drug effect incomplete [Unknown]
  - Upper respiratory tract infection [Unknown]
  - Dry eye [Unknown]
  - Fatigue [Unknown]
  - Headache [Unknown]
  - Musculoskeletal stiffness [Unknown]
